FAERS Safety Report 16422230 (Version 1)
Quarter: 2019Q2

REPORT INFORMATION
  Report Type: Spontaneous
  Country: US (occurrence: US)
  Receive Date: 20190612
  Receipt Date: 20190612
  Transmission Date: 20190711
  Serious: No
  Sender: FDA-Public Use
  Company Number: US-PERRIGO-18US009207

PATIENT
  Age: 76 Year
  Sex: Male
  Weight: 83.9 kg

DRUGS (3)
  1. MINOXIDIL. [Suspect]
     Active Substance: MINOXIDIL
     Indication: ALOPECIA
     Dosage: 1/2 CAPFUL, BID
     Route: 061
     Dates: start: 2016
  2. VITAMINS NOS [Concomitant]
     Active Substance: VITAMINS
     Indication: SUPPLEMENTATION THERAPY
     Dosage: UNK
     Route: 048
  3. OTHER ANTIINFLAMMATORY AND ANTIRHEUMATIC AGEN [Concomitant]
     Indication: ARTHRITIS
     Dosage: UNK
     Route: 048
     Dates: start: 2018

REACTIONS (2)
  - Condition aggravated [Unknown]
  - Therapeutic product effect decreased [Unknown]

NARRATIVE: CASE EVENT DATE: 201803
